FAERS Safety Report 9302569 (Version 2)
Quarter: 2013Q2

REPORT INFORMATION
  Report Type: Spontaneous
  Country: GB (occurrence: None)
  Receive Date: 20130517
  Receipt Date: 20130523
  Transmission Date: 20140414
  Serious: Yes (Disabling, Other)
  Sender: FDA-Public Use
  Company Number: AUR-APL-2013-04064

PATIENT
  Age: 52 Year
  Sex: Female
  Weight: 62.59 kg

DRUGS (4)
  1. TERBINAFINE [Suspect]
     Indication: FUNGAL INFECTION
     Route: 048
     Dates: start: 20121221, end: 20130422
  2. RITALIN (METHYLPHENIDATE HYDROCHLORIDE) [Concomitant]
  3. SERTRALINE (SERTRALINE) (SERTRALINE) [Concomitant]
  4. ZOPICLONE (ZOPICLONE) [Concomitant]

REACTIONS (5)
  - Abdominal discomfort [None]
  - Dysgeusia [None]
  - Quality of life decreased [None]
  - Dysgeusia [None]
  - Gastrooesophageal reflux disease [None]
